FAERS Safety Report 9931424 (Version 4)
Quarter: 2014Q2

REPORT INFORMATION
  Report Type: Spontaneous
  Country: JP (occurrence: JP)
  Receive Date: 20140228
  Receipt Date: 20140411
  Transmission Date: 20141212
  Serious: Yes (Death)
  Sender: FDA-Public Use
  Company Number: JP-BRISTOL-MYERS SQUIBB COMPANY-20300836

PATIENT
  Age: 9 Decade
  Sex: Female

DRUGS (2)
  1. ELIQUIS [Suspect]
     Dosage: TABS
     Route: 048
  2. DABIGATRAN ETEXILATE [Suspect]

REACTIONS (1)
  - Multi-organ failure [Fatal]
